FAERS Safety Report 7589409-5 (Version None)
Quarter: 2011Q3

REPORT INFORMATION
  Report Type: 
  Country: None (occurrence: None)
  Receive Date: 20110705
  Receipt Date: 20110630
  Transmission Date: 20111222
  Serious: Yes (Other)
  Sender: FDA-Public Use
  Company Number: IT-PFIZER INC-2011147371

PATIENT
  Age: 46 Year
  Sex: Male

DRUGS (8)
  1. MERREM [Suspect]
     Indication: PYREXIA
     Dosage: 3 G, 1X/DAY
     Route: 042
     Dates: start: 20110523, end: 20110606
  2. VFEND [Concomitant]
     Indication: PYREXIA
     Dosage: 400 MG, 1X/DAY
     Route: 042
     Dates: start: 20110514, end: 20110610
  3. ZYVOX [Suspect]
     Indication: PYREXIA
     Dosage: 1.2 G, 1X/DAY
     Route: 042
     Dates: start: 20110514, end: 20110606
  4. PRILOSEC [Suspect]
     Indication: PROPHYLAXIS AGAINST GASTROINTESTINAL ULCER
     Dosage: 20 MG, 1X/DAY
     Route: 048
     Dates: start: 20110514, end: 20110606
  5. LEVOFLOXACIN [Suspect]
     Indication: PYREXIA
     Dosage: 500 MG, 1X/DAY
     Route: 042
     Dates: start: 20110526, end: 20110608
  6. PIPERACILLIN AND TAZOBACTAM [Concomitant]
     Indication: PYREXIA
     Dosage: 13.5 G, 1X/DAY
     Route: 042
     Dates: start: 20110514, end: 20110610
  7. ZITHROMAX [Suspect]
     Indication: PYREXIA
     Dosage: 500 MG, 1X/DAY
     Route: 042
     Dates: start: 20110531, end: 20110531
  8. ZOVIRAX [Suspect]
     Indication: PYREXIA
     Dosage: 1.6 G, 1X/DAY
     Route: 042
     Dates: start: 20110514, end: 20110606

REACTIONS (2)
  - RASH GENERALISED [None]
  - SKIN EXFOLIATION [None]
